FAERS Safety Report 14570213 (Version 1)
Quarter: 2018Q1

REPORT INFORMATION
  Report Type: Spontaneous
  Country: US (occurrence: US)
  Receive Date: 20180225
  Receipt Date: 20180225
  Transmission Date: 20180509
  Serious: Yes (Other)
  Sender: FDA-Public Use
  Company Number: US-ABBVIE-18P-163-2263951-00

PATIENT
  Sex: Female
  Weight: 58.11 kg

DRUGS (3)
  1. LORATADINE. [Concomitant]
     Active Substance: LORATADINE
     Indication: HYPERSENSITIVITY
  2. SYNTHROID [Suspect]
     Active Substance: LEVOTHYROXINE SODIUM
     Indication: HYPOTHYROIDISM
     Route: 048
     Dates: start: 1955
  3. TRAMADOL. [Suspect]
     Active Substance: TRAMADOL
     Indication: HUMERUS FRACTURE
     Route: 065

REACTIONS (18)
  - Alopecia [Not Recovered/Not Resolved]
  - Joint dislocation [Not Recovered/Not Resolved]
  - Laceration [Recovered/Resolved]
  - Asthenia [Not Recovered/Not Resolved]
  - Essential tremor [Not Recovered/Not Resolved]
  - Fall [Recovered/Resolved]
  - Pneumonia [Recovering/Resolving]
  - Humerus fracture [Not Recovered/Not Resolved]
  - Head injury [Recovered/Resolved]
  - Ligament injury [Not Recovered/Not Resolved]
  - Pneumonia [Recovered/Resolved]
  - Vomiting [Recovered/Resolved]
  - Osteoporosis [Not Recovered/Not Resolved]
  - Abnormal faeces [Not Recovered/Not Resolved]
  - Fall [Recovered/Resolved]
  - Diarrhoea [Not Recovered/Not Resolved]
  - Urine odour abnormal [Not Recovered/Not Resolved]
  - Cough [Recovering/Resolving]

NARRATIVE: CASE EVENT DATE: 1968
